FAERS Safety Report 8958499 (Version 1)
Quarter: 2012Q4

REPORT INFORMATION
  Report Type: Spontaneous
  Country: US (occurrence: None)
  Receive Date: 20121205
  Receipt Date: 20121205
  Transmission Date: 20130627
  Serious: Yes (Hospitalization)
  Sender: FDA-Public Use
  Company Number: None

PATIENT
  Age: 81 Year
  Sex: Male
  Weight: 80.74 kg

DRUGS (3)
  1. GABAPENTIN 100 MG. CAPSULE [Suspect]
     Indication: NEUROPATHY
     Dosage: 100 MG. 2 A DAY MOUTH
     Route: 048
     Dates: start: 20120910
  2. GABAPENTIN 100 MG. CAPSULE [Suspect]
     Indication: PAIN IN FOOT
     Dosage: 100 MG. 2 A DAY MOUTH
     Route: 048
     Dates: start: 20120910
  3. GABAPENTIN 100 MG. CAPSULE [Suspect]
     Indication: BURNING FOOT
     Dosage: 100 MG. 2 A DAY MOUTH
     Route: 048
     Dates: start: 20120910

REACTIONS (2)
  - Urinary bladder haemorrhage [None]
  - Bladder pain [None]
